FAERS Safety Report 9234067 (Version 1)
Quarter: 2013Q2

REPORT INFORMATION
  Report Type: Spontaneous
  Country: US (occurrence: US)
  Receive Date: 20130416
  Receipt Date: 20130416
  Transmission Date: 20140414
  Serious: No
  Sender: FDA-Public Use
  Company Number: US-BAYER-2013-045049

PATIENT
  Age: 15 Year
  Sex: Female
  Weight: 61.22 kg

DRUGS (2)
  1. ALEVE TABLET [Suspect]
     Indication: HEADACHE
     Dosage: 1 DF, QD
     Route: 048
  2. BIRTH CONTROL PILL [Concomitant]

REACTIONS (4)
  - Foreign body [Not Recovered/Not Resolved]
  - Dysphagia [Not Recovered/Not Resolved]
  - Oropharyngeal pain [Not Recovered/Not Resolved]
  - Burning sensation [Not Recovered/Not Resolved]
